FAERS Safety Report 26130172 (Version 1)
Quarter: 2025Q4

REPORT INFORMATION
  Report Type: Spontaneous
  Country: GB (occurrence: GB)
  Receive Date: 20251208
  Receipt Date: 20251208
  Transmission Date: 20260118
  Serious: Yes (Hospitalization, Other)
  Sender: TEVA
  Company Number: None

PATIENT
  Sex: Female

DRUGS (1)
  1. MIRTAZAPINE [Suspect]
     Active Substance: MIRTAZAPINE
     Indication: Product used for unknown indication

REACTIONS (8)
  - Fatigue [Not Recovered/Not Resolved]
  - Renal impairment [Recovering/Resolving]
  - Depression [Recovered/Resolved with Sequelae]
  - Weight increased [Not Recovered/Not Resolved]
  - Panic attack [Recovered/Resolved with Sequelae]
  - Hallucination [Recovered/Resolved]
  - Blood cholesterol increased [Recovering/Resolving]
  - Medication error [Unknown]

NARRATIVE: CASE EVENT DATE: 20240101
